FAERS Safety Report 24536552 (Version 1)
Quarter: 2024Q4

REPORT INFORMATION
  Report Type: Spontaneous
  Country: US (occurrence: US)
  Receive Date: 20241022
  Receipt Date: 20241022
  Transmission Date: 20250115
  Serious: No
  Sender: SANOFI AVENTIS
  Company Number: US-SANOFI-02251385

PATIENT
  Age: 60 Year
  Sex: Male

DRUGS (1)
  1. APIDRA [Suspect]
     Active Substance: INSULIN GLULISINE
     Indication: Type 2 diabetes mellitus
     Dosage: 40 UNITS BEFORE BREAKFAST AND 44 UNITS BEFORE SUPPER

REACTIONS (3)
  - Injection site mass [Unknown]
  - Accidental exposure to product [Unknown]
  - Exposure via skin contact [Unknown]
